FAERS Safety Report 8610752-2 (Version None)
Quarter: 2012Q3

REPORT INFORMATION
  Report Type: 
  Country: None (occurrence: None)
  Receive Date: 20120822
  Receipt Date: 20120813
  Transmission Date: 20120928
  Serious: Yes (Hospitalization, Other)
  Sender: FDA-Public Use
  Company Number: US-JNJFOC-20120713137

PATIENT
  Sex: Male

DRUGS (5)
  1. COREG [Concomitant]
     Indication: HYPERTENSION
     Dosage: 6.25 (UNITS NOT SPECIFIED)
     Route: 065
  2. ALL OTHER THERAPEUTICS [Concomitant]
     Indication: HYPERTENSION
     Dosage: 80 UNITS NOT SPECIFIED
     Route: 065
  3. SIMVASTATIN [Concomitant]
     Indication: BLOOD CHOLESTEROL INCREASED
     Dosage: DOSE:80
     Route: 065
  4. REMICADE [Suspect]
     Indication: RHEUMATOID ARTHRITIS
     Route: 042
     Dates: start: 20110927
  5. METHOTREXATE [Suspect]
     Indication: RHEUMATOID ARTHRITIS
     Route: 048
     Dates: start: 20071030

REACTIONS (3)
  - INTERSTITIAL LUNG DISEASE [None]
  - HAEMOPTYSIS [None]
  - PNEUMONITIS CHEMICAL [None]
